FAERS Safety Report 11172328 (Version 1)
Quarter: 2015Q2

REPORT INFORMATION
  Report Type: Spontaneous
  Country: US (occurrence: US)
  Receive Date: 20150608
  Receipt Date: 20150608
  Transmission Date: 20150821
  Serious: No
  Sender: FDA-Public Use
  Company Number: US-PFIZER INC-2015188409

PATIENT
  Age: 57 Year
  Sex: Female

DRUGS (11)
  1. SIMVASTATIN. [Concomitant]
     Active Substance: SIMVASTATIN
     Dosage: 20 MG, DAILY
     Dates: start: 20150416
  2. OXYCODONE-ACETAMINOPHEN [Concomitant]
     Active Substance: ACETAMINOPHEN\OXYCODONE HYDROCHLORIDE
     Dosage: (OXYCODONE- 5MG, ACETAMINOPHEN-325MG), 1-2 TABLET,1X/DAY
     Route: 048
     Dates: start: 20150429
  3. CETIRIZINE HCL [Concomitant]
     Active Substance: CETIRIZINE HYDROCHLORIDE
     Indication: SEASONAL ALLERGY
     Dosage: 10 MG, DAILY
     Dates: start: 20150506
  4. LYRICA [Suspect]
     Active Substance: PREGABALIN
     Indication: NEURITIS
     Dosage: 150 MG, 2X/DAY
     Dates: start: 20141006
  5. TIZANIDINE HCL [Concomitant]
     Active Substance: TIZANIDINE HYDROCHLORIDE
     Indication: BACK PAIN
     Dosage: 2-4 TABLET, DAILY
     Dates: start: 20150425
  6. ATENOLOL. [Suspect]
     Active Substance: ATENOLOL
     Indication: HYPERTENSION
     Dosage: 50 MG, DAILY
     Dates: start: 20140903
  7. TRAZODONE [Suspect]
     Active Substance: TRAZODONE HYDROCHLORIDE
     Indication: INSOMNIA
     Dosage: 200 MG, 1X/DAY (2 TABLET AT BED TIME)
     Dates: start: 20140903
  8. SULINDAC. [Concomitant]
     Active Substance: SULINDAC
     Dosage: 150 MG, 2X/DAY
     Dates: start: 20140708
  9. LISINOPRIL. [Suspect]
     Active Substance: LISINOPRIL
     Indication: HYPERTENSION
     Dosage: 20 MG, DAILY
     Dates: start: 20140903
  10. NASACORT AQ [Concomitant]
     Active Substance: TRIAMCINOLONE ACETONIDE
     Indication: SEASONAL ALLERGY
     Dosage: 55MCG/ACT, 1-2 SPRAYS PER NOSTRIL PER DAY
     Route: 045
     Dates: start: 20150506
  11. GEMFIBROZIL. [Concomitant]
     Active Substance: GEMFIBROZIL
     Indication: HYPERLIPIDAEMIA
     Dosage: UNK
     Dates: start: 20140414

REACTIONS (1)
  - Upper respiratory tract infection [Unknown]
